FAERS Safety Report 15741523 (Version 3)
Quarter: 2019Q1

REPORT INFORMATION
  Report Type: Spontaneous
  Country: US (occurrence: US)
  Receive Date: 20181219
  Receipt Date: 20190306
  Transmission Date: 20190417
  Serious: Yes (Other)
  Sender: FDA-Public Use
  Company Number: US-SA-2018SA344472

PATIENT
  Age: 30 Year
  Sex: Female
  Weight: 117 kg

DRUGS (9)
  1. TAXOTERE [Suspect]
     Active Substance: DOCETAXEL
     Dosage: 75 MG/M2, Q3W
     Route: 042
     Dates: start: 20150220, end: 20150220
  2. CYTOXAN [Concomitant]
     Active Substance: CYCLOPHOSPHAMIDE
     Dosage: 1392 MG, Q3W
     Route: 042
     Dates: start: 20150130, end: 20150130
  3. NEOSAR [Concomitant]
     Active Substance: CYCLOPHOSPHAMIDE
     Dosage: UNK UNK, UNK
     Route: 065
  4. TAXOTERE [Suspect]
     Active Substance: DOCETAXEL
     Indication: BREAST CANCER FEMALE
     Dosage: 75 MG/M2, Q3W
     Route: 042
     Dates: start: 20141219, end: 20141219
  5. TAXOTERE [Suspect]
     Active Substance: DOCETAXEL
     Dosage: 177 MG, Q3W
     Route: 042
     Dates: start: 20150109, end: 20150109
  6. CYTOXAN [Concomitant]
     Active Substance: CYCLOPHOSPHAMIDE
     Dosage: UNK UNK, UNK
     Route: 042
     Dates: start: 20141219, end: 20141219
  7. CYTOXAN [Concomitant]
     Active Substance: CYCLOPHOSPHAMIDE
     Dosage: 1400 MG, Q3W
     Route: 042
     Dates: start: 20150220, end: 20150220
  8. TAXOTERE [Suspect]
     Active Substance: DOCETAXEL
     Dosage: 174 MG, Q3W
     Route: 042
     Dates: start: 20150130, end: 20150130
  9. CYTOXAN [Concomitant]
     Active Substance: CYCLOPHOSPHAMIDE
     Dosage: 1416 MG, Q3W
     Route: 042
     Dates: start: 20150109, end: 20150109

REACTIONS (2)
  - Psychological trauma [Unknown]
  - Alopecia [Recovering/Resolving]

NARRATIVE: CASE EVENT DATE: 20150820
